FAERS Safety Report 6871797-6 (Version None)
Quarter: 2010Q3

REPORT INFORMATION
  Report Type: 
  Country: None (occurrence: None)
  Receive Date: 20100723
  Receipt Date: 20100709
  Transmission Date: 20110219
  Serious: Yes (Hospitalization)
  Sender: FDA-Public Use
  Company Number: B0522668B

PATIENT
  Sex: Female
  Weight: 61 kg

DRUGS (3)
  1. LAPATINIB [Suspect]
     Indication: BREAST CANCER
     Dosage: 1500MG PER DAY
     Route: 048
     Dates: start: 20080722
  2. TRASTUZUMAB [Suspect]
     Indication: BREAST CANCER
     Dosage: 2MGK WEEKLY
     Route: 042
     Dates: start: 20080311
  3. TRILEPTAL [Concomitant]
     Indication: ALCOHOL ABUSE
     Dosage: 300MG THREE TIMES PER DAY
     Route: 048
     Dates: start: 20081014, end: 20081022

REACTIONS (3)
  - ALCOHOL WITHDRAWAL SYNDROME [None]
  - DEPRESSION [None]
  - STRESS [None]
